FAERS Safety Report 7303499-6 (Version None)
Quarter: 2011Q1

REPORT INFORMATION
  Report Type: 
  Country: None (occurrence: None)
  Receive Date: 20110221
  Receipt Date: 20110210
  Transmission Date: 20110831
  Serious: Yes (Hospitalization)
  Sender: FDA-Public Use
  Company Number: PHHO2011DE02772

PATIENT
  Sex: Female
  Weight: 99 kg

DRUGS (8)
  1. KALINOR-RETARD P [Concomitant]
  2. TRACLEER [Concomitant]
  3. STI571/CGP57148B [Suspect]
     Indication: PULMONARY ARTERIAL HYPERTENSION
     Dosage: UNK
     Route: 048
     Dates: start: 20110203
  4. SPIRONOLACTONE [Concomitant]
  5. MARCUMAR [Concomitant]
  6. EUTHYROX [Concomitant]
  7. TOREM [Concomitant]
  8. REVATIO [Concomitant]

REACTIONS (3)
  - OEDEMA [None]
  - WEIGHT INCREASED [None]
  - RIGHT VENTRICULAR FAILURE [None]
